FAERS Safety Report 13986350 (Version 1)
Quarter: 2017Q3

REPORT INFORMATION
  Report Type: Spontaneous
  Country: US (occurrence: US)
  Receive Date: 20170918
  Receipt Date: 20170918
  Transmission Date: 20171128
  Serious: No
  Sender: FDA-Public Use
  Company Number: None

PATIENT
  Age: 58 Year
  Sex: Male
  Weight: 72 kg

DRUGS (3)
  1. NIZAGRA ST-100 MG SILDNEAFIL CITRATE [Suspect]
     Active Substance: SILDENAFIL CITRATE
     Indication: ERECTILE DYSFUNCTION
     Dosage: ?          QUANTITY:10 TABLET(S);?
     Route: 060
     Dates: start: 20170918, end: 20170918
  2. GOODY POWDERS [Concomitant]
  3. VITAMINS [Concomitant]
     Active Substance: VITAMINS

REACTIONS (4)
  - Malaise [None]
  - Nausea [None]
  - Suspected counterfeit product [None]
  - Headache [None]

NARRATIVE: CASE EVENT DATE: 20170918
